FAERS Safety Report 23199931 (Version 4)
Quarter: 2023Q4

REPORT INFORMATION
  Report Type: Spontaneous
  Country: CL (occurrence: CL)
  Receive Date: 20231117
  Receipt Date: 20231218
  Transmission Date: 20240109
  Serious: Yes (Hospitalization, Disabling, Other)
  Sender: FDA-Public Use
  Company Number: CL-BIOMARINAP-CL-2023-153973

PATIENT

DRUGS (1)
  1. VOXZOGO [Suspect]
     Active Substance: VOSORITIDE
     Indication: Osteochondrodysplasia
     Dosage: 0.5 MILLILITER, QD
     Route: 058

REACTIONS (6)
  - Lumbar spinal stenosis [Recovering/Resolving]
  - Spinal cord compression [Recovering/Resolving]
  - Kyphosis [Recovering/Resolving]
  - Nervous system disorder [Recovering/Resolving]
  - Thoracic spinal stenosis [Recovering/Resolving]
  - Gait disturbance [Recovering/Resolving]

NARRATIVE: CASE EVENT DATE: 20231020
